FAERS Safety Report 17416383 (Version 2)
Quarter: 2020Q1

REPORT INFORMATION
  Report Type: Spontaneous
  Country: DE (occurrence: DE)
  Receive Date: 20200213
  Receipt Date: 20200218
  Transmission Date: 20200409
  Serious: Yes (Hospitalization)
  Sender: FDA-Public Use
  Company Number: DE-ALLERGAN-2007127US

PATIENT
  Sex: Female

DRUGS (1)
  1. ESCITALOPRAM OXALATE - BP [Suspect]
     Active Substance: ESCITALOPRAM OXALATE
     Indication: DEPRESSION
     Dosage: 20 MG, QD
     Route: 065
     Dates: start: 201912

REACTIONS (8)
  - Rash macular [Not Recovered/Not Resolved]
  - Adverse drug reaction [Unknown]
  - Reaction to excipient [Unknown]
  - Product substitution issue [Unknown]
  - Prescription drug used without a prescription [Unknown]
  - Pruritus [Unknown]
  - Product dose omission [Unknown]
  - Product packaging issue [Unknown]

NARRATIVE: CASE EVENT DATE: 20200128
